FAERS Safety Report 20655030 (Version 1)
Quarter: 2022Q1

REPORT INFORMATION
  Report Type: Spontaneous
  Country: CN (occurrence: None)
  Receive Date: 20220330
  Receipt Date: 20220330
  Transmission Date: 20220424
  Serious: Yes (Hospitalization)
  Sender: FDA-Public Use
  Company Number: CN-Eisai Medical Research-EC-2022-111573

PATIENT
  Age: 83 Year
  Sex: Male
  Weight: 65 kg

DRUGS (1)
  1. LENVIMA [Suspect]
     Active Substance: LENVATINIB
     Indication: Hepatic cancer
     Route: 048
     Dates: start: 20200101

REACTIONS (3)
  - Chest discomfort [Recovering/Resolving]
  - Troponin increased [Recovering/Resolving]
  - Arterial stenosis [Recovering/Resolving]

NARRATIVE: CASE EVENT DATE: 20220312
